FAERS Safety Report 6000503-2 (Version None)
Quarter: 2008Q4

REPORT INFORMATION
  Report Type: 
  Country: None (occurrence: None)
  Receive Date: 20081215
  Receipt Date: 20080425
  Transmission Date: 20090506
  Serious: No
  Sender: FDA-Public Use
  Company Number: US-BAYER-200812037BCC

PATIENT
  Age: 60 Year
  Sex: Male
  Weight: 83 kg

DRUGS (2)
  1. ALEVE (CAPLET) [Suspect]
     Indication: MYALGIA
     Dosage: TOTAL DAILY DOSE: 440 MG  UNIT DOSE: 220 MG
     Route: 048
     Dates: start: 20080424
  2. LOVAZA [Concomitant]
     Indication: DRUG USE FOR UNKNOWN INDICATION

REACTIONS (1)
  - MYALGIA [None]
